FAERS Safety Report 6167656-7 (Version None)
Quarter: 2009Q2

REPORT INFORMATION
  Report Type: 
  Country: None (occurrence: None)
  Receive Date: 20090424
  Receipt Date: 20090422
  Transmission Date: 20091009
  Serious: Yes (Death, Hospitalization)
  Sender: FDA-Public Use
  Company Number: PHHY2009FR15060

PATIENT
  Sex: Male

DRUGS (9)
  1. LEPONEX [Suspect]
     Indication: HALLUCINATION
     Dosage: 12.5 MG, QD
     Dates: start: 20090319, end: 20090323
  2. RIVOTRIL [Interacting]
     Indication: AGITATION
     Dosage: 20 DROPS/DAY
     Dates: start: 20090301, end: 20090323
  3. ATARAX [Interacting]
     Indication: AGITATION
     Dosage: 100 MG, QD
  4. ATARAX [Interacting]
     Dosage: 150 MG, QD
     Dates: start: 20090321, end: 20090322
  5. ARICEPT [Concomitant]
     Indication: DEMENTIA
     Dosage: 5 MG/DAY
     Dates: start: 20080801
  6. PRAXILENE [Concomitant]
     Indication: DEMENTIA
     Dosage: 200 MG/DAY
     Dates: start: 20080101
  7. PLAVIX [Concomitant]
     Indication: MYOCARDIAL INFARCTION
     Dosage: 75 MG, QD
     Dates: start: 19940101
  8. PERINDOPRIL ERBUMINE [Concomitant]
     Indication: MYOCARDIAL INFARCTION
     Dosage: 4 MG, QD
     Dates: start: 19940101
  9. ELISOR [Concomitant]
     Dosage: 20 MG, QD
     Dates: start: 19940101

REACTIONS (11)
  - AGGRESSION [None]
  - C-REACTIVE PROTEIN ABNORMAL [None]
  - CHEST X-RAY ABNORMAL [None]
  - DRUG INTERACTION [None]
  - GLASGOW COMA SCALE ABNORMAL [None]
  - INCREASED BRONCHIAL SECRETION [None]
  - INFECTION [None]
  - PNEUMONIA ASPIRATION [None]
  - SEPSIS [None]
  - SOMNOLENCE [None]
  - WHITE BLOOD CELL DISORDER [None]
